FAERS Safety Report 8704683 (Version 2)
Quarter: 2012Q4

REPORT INFORMATION
  Report Type: Report from Study
  Country: US (occurrence: US)
  Receive Date: 20120803
  Receipt Date: 20120907
  Transmission Date: 20130627
  Serious: Yes (Hospitalization, Other)
  Sender: FDA-Public Use
  Company Number: US-ACTELION-A-US2012-69386

PATIENT
  Age: 69 Year
  Sex: Male

DRUGS (13)
  1. TRACLEER [Suspect]
     Indication: CARDIAC FAILURE
     Dosage: UNK
     Route: 048
     Dates: end: 20120711
  2. ASPIRIN [Concomitant]
  3. PEPCID [Concomitant]
  4. GLIMEPIRIDE [Concomitant]
  5. LEVOTHYROXINE [Concomitant]
  6. CELLCEPT [Concomitant]
  7. PRAVACHOL [Concomitant]
  8. PREDNISONE [Concomitant]
  9. TACROLIMUS [Concomitant]
  10. VALCYTE [Concomitant]
  11. TYLENOL [Concomitant]
  12. OXYCODONE [Concomitant]
  13. TRAZODONE [Concomitant]

REACTIONS (7)
  - Heart transplant [Unknown]
  - Hernia diaphragmatic repair [Unknown]
  - Blood creatinine increased [Unknown]
  - Infection [Unknown]
  - Medical device removal [Unknown]
  - Debridement [Unknown]
  - Blood urea increased [Unknown]
